FAERS Safety Report 9638319 (Version 1)
Quarter: 2013Q4

REPORT INFORMATION
  Report Type: Spontaneous
  Country: US (occurrence: US)
  Receive Date: 20131022
  Receipt Date: 20131022
  Transmission Date: 20140711
  Serious: Yes (Other)
  Sender: FDA-Public Use
  Company Number: US-GLAXOSMITHKLINE-A1045944A

PATIENT
  Sex: Female

DRUGS (4)
  1. LOVAZA [Suspect]
     Indication: BLOOD TRIGLYCERIDES INCREASED
     Dosage: 2CAP TWICE PER DAY
     Route: 048
  2. LISINOPRIL [Concomitant]
  3. OMEPRAZOLE [Concomitant]
  4. PYRIDOSTIGMINE [Concomitant]

REACTIONS (2)
  - Type 1 diabetes mellitus [Unknown]
  - Inappropriate schedule of drug administration [Unknown]
